FAERS Safety Report 7959237-7 (Version None)
Quarter: 2011Q4

REPORT INFORMATION
  Report Type: 
  Country: None (occurrence: None)
  Receive Date: 20111206
  Receipt Date: 20111202
  Transmission Date: 20120403
  Serious: Yes (Other)
  Sender: FDA-Public Use
  Company Number: RS-PFIZER INC-2011295960

PATIENT
  Age: 63 Year
  Sex: Female
  Weight: 65 kg

DRUGS (4)
  1. BISOPROLOL [Concomitant]
     Dosage: 2.5 MG, 1X/DAY, IN THE MORNING
  2. NORVASC [Suspect]
     Indication: HYPERTENSION
     Dosage: UNK
     Route: 048
     Dates: start: 20101207, end: 20110920
  3. MONOPRIL-HCT [Concomitant]
     Indication: HYPERTENSION
     Dosage: 20 MG/12.5 MG, 1X/DAY, IN THE MORNING
     Dates: start: 20070124
  4. MONOPRIL [Concomitant]
     Dosage: 20 MG, 1X/DAY, EVENING

REACTIONS (1)
  - CONTUSION [None]
